FAERS Safety Report 6818750-6 (Version None)
Quarter: 2010Q2

REPORT INFORMATION
  Report Type: 
  Country: None (occurrence: None)
  Receive Date: 20100630
  Receipt Date: 20100225
  Transmission Date: 20101027
  Serious: Yes (Other)
  Sender: FDA-Public Use
  Company Number: AUR-APL-2010-01522

PATIENT
  Age: 44 Year
  Sex: Male
  Weight: 78 kg

DRUGS (7)
  1. PAROXETINE [Suspect]
     Indication: ANXIETY
     Dates: start: 20091123, end: 20100223
  2. CHAMPIX FILM-COATED TABLET [Suspect]
     Indication: SMOKING CESSATION THERAPY
     Dosage: 1 MG, Q12H, ORAL
     Route: 048
  3. ENALAPRIL MALEATE [Concomitant]
  4. ATENOLOL [Concomitant]
  5. CLOPIDOGREL [Concomitant]
  6. FRONTAL [Concomitant]
  7. SIMVASTATIN [Concomitant]

REACTIONS (6)
  - ANXIETY [None]
  - MALAISE [None]
  - PANIC DISORDER [None]
  - PASSIVE SMOKING [None]
  - TREATMENT FAILURE [None]
  - TREATMENT NONCOMPLIANCE [None]
